FAERS Safety Report 17060826 (Version 1)
Quarter: 2019Q4

REPORT INFORMATION
  Report Type: Report from Study
  Country: None (occurrence: RO)
  Receive Date: 20191121
  Receipt Date: 20191121
  Transmission Date: 20200122
  Serious: Yes (Hospitalization)
  Sender: FDA-Public Use
  Company Number: RO-ABBVIE-19K-135-3010561-00

PATIENT
  Age: 65 Year
  Sex: Male

DRUGS (1)
  1. DUODOPA [Suspect]
     Active Substance: CARBIDOPA\LEVODOPA
     Indication: PARKINSON^S DISEASE
     Dosage: DM=0.00??DC=3.60??ED=3.20??NRED=0;??DMN=3.00??DCN=3.00??EDN=3.00??NREDN=0
     Route: 050
     Dates: start: 20121114

REACTIONS (5)
  - Skin irritation [Recovering/Resolving]
  - Device leakage [Recovering/Resolving]
  - Peripheral sensory neuropathy [Recovering/Resolving]
  - Dermatitis [Recovering/Resolving]
  - Stoma site ulcer [Recovering/Resolving]

NARRATIVE: CASE EVENT DATE: 20191114
